FAERS Safety Report 13924954 (Version 1)
Quarter: 2017Q3

REPORT INFORMATION
  Report Type: Not Available
  Country: SE (occurrence: SE)
  Receive Date: 20170831
  Receipt Date: 20170831
  Transmission Date: 20171127
  Serious: Yes (Death)
  Sender: FDA-Public Use
  Company Number: SE-ANIPHARMA-2017-SE-000005

PATIENT
  Age: 52 Year
  Sex: Male

DRUGS (1)
  1. LITHIUM CARBONATE (NON-SPECIFIC) [Suspect]
     Active Substance: LITHIUM

REACTIONS (9)
  - Myocardial fibrosis [Fatal]
  - Pancreatic steatosis [Fatal]
  - Myocarditis [Fatal]
  - Renal amyloidosis [Fatal]
  - Arteriosclerosis coronary artery [Fatal]
  - Pancreatic fibrosis [Fatal]
  - Toxicity to various agents [Fatal]
  - Pneumonia [Fatal]
  - Death [Fatal]
